FAERS Safety Report 21383332 (Version 2)
Quarter: 2022Q4

REPORT INFORMATION
  Report Type: Spontaneous
  Country: GR (occurrence: GR)
  Receive Date: 20220927
  Receipt Date: 20221028
  Transmission Date: 20230113
  Serious: Yes (Other)
  Sender: FDA-Public Use
  Company Number: GR-009507513-2209GRC008141

PATIENT
  Age: 42 Year
  Sex: Female

DRUGS (2)
  1. KEYTRUDA [Suspect]
     Active Substance: PEMBROLIZUMAB
     Indication: Triple negative breast cancer
     Dosage: 200 MILLIGRAM, EVERY 3 WEEKS
  2. KEYTRUDA [Suspect]
     Active Substance: PEMBROLIZUMAB
     Dosage: 200 MILLIGRAM, Q3W
     Dates: end: 20220821

REACTIONS (12)
  - Hepatotoxicity [Not Recovered/Not Resolved]
  - Nephropathy toxic [Recovered/Resolved]
  - Chemotherapy [Unknown]
  - Lymphadenectomy [Unknown]
  - Toxicity to various agents [Unknown]
  - Simple mastectomy [Unknown]
  - White blood cell count decreased [Unknown]
  - Mucosal inflammation [Unknown]
  - Dehydration [Unknown]
  - Pyrexia [Unknown]
  - Rash [Recovered/Resolved]
  - Rash [Recovered/Resolved]

NARRATIVE: CASE EVENT DATE: 20220101
